FAERS Safety Report 5189888-7 (Version None)
Quarter: 2006Q4

REPORT INFORMATION
  Report Type: 
  Country: None (occurrence: None)
  Receive Date: 20061218
  Receipt Date: 20061211
  Transmission Date: 20070319
  Serious: Yes (Death, Life-Threatening, Hospitalization)
  Sender: FDA-Public Use
  Company Number: 167-C5013-06090754

PATIENT
  Age: 60 Year
  Sex: Female

DRUGS (1)
  1. CC-5013 (LENALIDOMIDE) (CAPSULES) [Suspect]
     Indication: MYELODYSPLASTIC SYNDROME
     Dosage: 10 MG, ORAL
     Route: 048
     Dates: start: 20060628, end: 20060918

REACTIONS (6)
  - ATRIOVENTRICULAR BLOCK THIRD DEGREE [None]
  - CARDIAC ARREST [None]
  - NEUTROPENIC SEPSIS [None]
  - PERICARDIAL EFFUSION [None]
  - PERICARDITIS [None]
  - RENAL IMPAIRMENT [None]
